FAERS Safety Report 10896595 (Version 1)
Quarter: 2015Q1

REPORT INFORMATION
  Report Type: Spontaneous
  Country: BR (occurrence: None)
  Receive Date: 20150302
  Receipt Date: 20150302
  Transmission Date: 20150721
  Serious: Yes (Other)
  Sender: FDA-Public Use
  Company Number: 2015SCAL000069

PATIENT
  Age: 48 Year
  Sex: Male

DRUGS (3)
  1. HYDROCHLOROTHIAZIDE (HYDROCHLOROTHIAZIDE) [Suspect]
     Active Substance: HYDROCHLOROTHIAZIDE
     Indication: HYPERTENSION
  2. PAROXETINE (PAROXETINE) [Concomitant]
     Active Substance: PAROXETINE HYDROCHLORIDE
  3. RISPERIDONE (RISPERIDONE) [Suspect]
     Active Substance: RISPERIDONE
     Indication: PERSECUTORY DELUSION

REACTIONS (5)
  - Drug interaction [None]
  - Electrocardiogram QT prolonged [None]
  - Electrocardiogram T wave amplitude decreased [None]
  - Electrocardiogram U-wave abnormality [None]
  - Hypokalaemia [None]
